FAERS Safety Report 7328017-8 (Version None)
Quarter: 2011Q1

REPORT INFORMATION
  Report Type: 
  Country: None (occurrence: None)
  Receive Date: 20110303
  Receipt Date: 20110221
  Transmission Date: 20110831
  Serious: Yes (Other)
  Sender: FDA-Public Use
  Company Number: BR-BAYER-2011-005713

PATIENT
  Sex: Female
  Weight: 65 kg

DRUGS (1)
  1. MIRENA [Suspect]
     Indication: MENSTRUAL CYCLE MANAGEMENT
     Dosage: 20 ?G, CONT
     Route: 015
     Dates: start: 20101028, end: 20110120

REACTIONS (13)
  - DIZZINESS [None]
  - MENORRHAGIA [None]
  - LABYRINTHITIS [None]
  - PREMENSTRUAL SYNDROME [None]
  - HYPOAESTHESIA [None]
  - ABDOMINAL DISTENSION [None]
  - MIGRAINE [None]
  - VAGINAL HAEMORRHAGE [None]
  - FEELING HOT [None]
  - MALAISE [None]
  - IRRITABILITY [None]
  - NAUSEA [None]
  - COORDINATION ABNORMAL [None]
